FAERS Safety Report 10067397 (Version 6)
Quarter: 2015Q4

REPORT INFORMATION
  Report Type: Spontaneous
  Country: US (occurrence: US)
  Receive Date: 20140409
  Receipt Date: 20151026
  Transmission Date: 20160304
  Serious: Yes (Life-Threatening, Hospitalization, Disabling, Other)
  Sender: FDA-Public Use
  Company Number: US-009507513-1404USA004121

PATIENT
  Sex: Female
  Weight: 62.59 kg

DRUGS (4)
  1. JANUMET [Suspect]
     Active Substance: METFORMIN HYDROCHLORIDE\SITAGLIPTIN PHOSPHATE
     Dosage: 50/1000 MG, BID
     Route: 048
     Dates: start: 20090223, end: 20120526
  2. JANUMET [Suspect]
     Active Substance: METFORMIN HYDROCHLORIDE\SITAGLIPTIN PHOSPHATE
     Indication: TYPE 2 DIABETES MELLITUS
     Dosage: 50/1000 MG QD INTERMITTENTLY
     Route: 048
     Dates: start: 20100407, end: 20120526
  3. JANUVIA [Suspect]
     Active Substance: SITAGLIPTIN PHOSPHATE
     Indication: TYPE 2 DIABETES MELLITUS
     Dosage: 100 MG, QD
     Route: 048
     Dates: start: 20080506, end: 20090210
  4. BYETTA [Suspect]
     Active Substance: EXENATIDE
     Indication: TYPE 2 DIABETES MELLITUS
     Dosage: 5 MICROGRAM, BID
     Dates: start: 20060608, end: 20080128

REACTIONS (25)
  - Blood triglycerides increased [Unknown]
  - Pancreatic neuroendocrine tumour metastatic [Not Recovered/Not Resolved]
  - Pancreatectomy [Unknown]
  - Splenectomy [Unknown]
  - Hypothyroidism [Unknown]
  - Metastases to liver [Unknown]
  - Liver operation [Unknown]
  - Underdose [Unknown]
  - Stent placement [Unknown]
  - Hernia repair [Unknown]
  - Respiratory symptom [Unknown]
  - Dysuria [Unknown]
  - Snoring [Unknown]
  - Back pain [Unknown]
  - Metastases to lymph nodes [Unknown]
  - Vascular operation [Unknown]
  - Pancreatitis [Recovered/Resolved]
  - Pneumonia [Recovering/Resolving]
  - Decreased appetite [Unknown]
  - Lymphadenopathy [Unknown]
  - Diarrhoea [Unknown]
  - Diarrhoea [Unknown]
  - Drug hypersensitivity [Unknown]
  - Cholecystectomy [Unknown]
  - Hypercholesterolaemia [Unknown]

NARRATIVE: CASE EVENT DATE: 20100407
